FAERS Safety Report 9702837 (Version 1)
Quarter: 2013Q4

REPORT INFORMATION
  Report Type: Spontaneous
  Country: RU (occurrence: RU)
  Receive Date: 20131121
  Receipt Date: 20131121
  Transmission Date: 20140711
  Serious: Yes (Other)
  Sender: FDA-Public Use
  Company Number: RU-TEVA-446269USA

PATIENT
  Age: 72 Year
  Sex: Male

DRUGS (1)
  1. BENDAMUSTINE [Suspect]
     Indication: CHRONIC LYMPHOCYTIC LEUKAEMIA
     Dosage: FOR TWO DAYS EVERY 4 WEEKS

REACTIONS (1)
  - Bradycardia [Unknown]
